FAERS Safety Report 12630120 (Version 2)
Quarter: 2016Q3

REPORT INFORMATION
  Report Type: Spontaneous
  Country: IE (occurrence: IE)
  Receive Date: 20160808
  Receipt Date: 20160930
  Transmission Date: 20161109
  Serious: Yes (Disabling, Other)
  Sender: FDA-Public Use
  Company Number: IE-PFIZER INC-2016375666

PATIENT
  Age: 59 Year
  Sex: Female

DRUGS (1)
  1. LYRICA [Suspect]
     Active Substance: PREGABALIN
     Indication: ARTHRALGIA
     Dosage: 75 MG, 2X/DAY
     Route: 048
     Dates: start: 20160330, end: 20160423

REACTIONS (20)
  - Product use issue [Unknown]
  - Memory impairment [Not Recovered/Not Resolved]
  - Liver function test increased [Unknown]
  - Affect lability [Not Recovered/Not Resolved]
  - Irritability [Unknown]
  - Tremor [Not Recovered/Not Resolved]
  - Tearfulness [Not Recovered/Not Resolved]
  - Headache [Not Recovered/Not Resolved]
  - Thyroid hormones increased [Unknown]
  - Diarrhoea [Not Recovered/Not Resolved]
  - Malaise [Not Recovered/Not Resolved]
  - Nausea [Not Recovered/Not Resolved]
  - Blood pressure increased [Not Recovered/Not Resolved]
  - Intraocular pressure increased [Not Recovered/Not Resolved]
  - Myocardial necrosis marker increased [Unknown]
  - Blood pressure decreased [Not Recovered/Not Resolved]
  - Blood glucose decreased [Unknown]
  - Hyperglycaemia [Unknown]
  - Increased appetite [Not Recovered/Not Resolved]
  - Blood creatinine increased [Unknown]
